FAERS Safety Report 15303577 (Version 1)
Quarter: 2018Q3

REPORT INFORMATION
  Report Type: Report from Study
  Country: US (occurrence: US)
  Receive Date: 20180821
  Receipt Date: 20180821
  Transmission Date: 20181010
  Serious: No
  Sender: FDA-Public Use
  Company Number: US-AMGEN INC.-USASL2018090543

PATIENT
  Age: 17 Year
  Sex: Female

DRUGS (1)
  1. AIMOVIG [Suspect]
     Active Substance: ERENUMAB-AOOE
     Indication: MIGRAINE
     Dosage: 140 MG, QMO
     Route: 065
     Dates: start: 20180626

REACTIONS (11)
  - Injection site urticaria [Recovering/Resolving]
  - Rash [Recovering/Resolving]
  - Constipation [Not Recovered/Not Resolved]
  - Nausea [Not Recovered/Not Resolved]
  - Injection site reaction [Unknown]
  - Faeces discoloured [Not Recovered/Not Resolved]
  - Abdominal pain upper [Unknown]
  - Upper respiratory tract infection [Not Recovered/Not Resolved]
  - Injection site pain [Recovering/Resolving]
  - Dyspnoea [Not Recovered/Not Resolved]
  - Hyperhidrosis [Not Recovered/Not Resolved]

NARRATIVE: CASE EVENT DATE: 201806
